FAERS Safety Report 5302095-X (Version None)
Quarter: 2007Q2

REPORT INFORMATION
  Report Type: 
  Country: None (occurrence: None)
  Receive Date: 20070419
  Receipt Date: 20070413
  Transmission Date: 20071010
  Serious: Yes (Other)
  Sender: FDA-Public Use
  Company Number: JP-GLAXOSMITHKLINE-B0464089A

PATIENT
  Age: 23 Year
  Sex: Female

DRUGS (5)
  1. PAXIL [Suspect]
     Indication: DEPRESSION
     Route: 048
     Dates: start: 20060727, end: 20060831
  2. MEILAX [Concomitant]
     Indication: ANXIETY
     Dosage: 1MG PER DAY
     Route: 048
     Dates: start: 20060608
  3. RESLIN [Concomitant]
     Route: 048
  4. DEPAKENE [Concomitant]
     Route: 048
  5. TRYPTANOL [Concomitant]
     Route: 048

REACTIONS (2)
  - IRRITABILITY [None]
  - SELF INJURIOUS BEHAVIOUR [None]
